FAERS Safety Report 6138677-5 (Version None)
Quarter: 2009Q1

REPORT INFORMATION
  Report Type: 
  Country: None (occurrence: None)
  Receive Date: 20090327
  Receipt Date: 20080916
  Transmission Date: 20090719
  Serious: Yes (Other)
  Sender: FDA-Public Use
  Company Number: 2008EU002056

PATIENT
  Age: 79 Year
  Sex: Female
  Weight: 70 kg

DRUGS (9)
  1. VESICARE [Suspect]
     Indication: STRESS URINARY INCONTINENCE
     Dosage: 5 MG, UID/QD, ORAL ; 5 MG, UID/QD, ORAL
     Route: 048
     Dates: start: 20071012, end: 20071105
  2. VESICARE [Suspect]
     Indication: STRESS URINARY INCONTINENCE
     Dosage: 5 MG, UID/QD, ORAL ; 5 MG, UID/QD, ORAL
     Route: 048
     Dates: start: 20070910
  3. AMLODIPINE [Concomitant]
  4. ANAFRANIL [Concomitant]
  5. LORAZEPAM [Concomitant]
  6. CARDIOASPIRINE [Concomitant]
  7. GLUCOPHAGE [Concomitant]
  8. LIPITOR [Concomitant]
  9. AROPAX (PAROXETINE HYDROCHLORIDE) [Concomitant]

REACTIONS (1)
  - HYPERGLYCAEMIA [None]
